FAERS Safety Report 9200936 (Version 2)
Quarter: 2013Q3

REPORT INFORMATION
  Report Type: Report from Study
  Country: CA (occurrence: CA)
  Receive Date: 20130401
  Receipt Date: 20130719
  Transmission Date: 20140515
  Serious: Yes (Other)
  Sender: FDA-Public Use
  Company Number: CA-JNJFOC-20130311087

PATIENT
  Age: 64 Year
  Sex: Male
  Weight: 76 kg

DRUGS (2)
  1. REMICADE [Suspect]
     Indication: CROHN^S DISEASE
     Route: 042
     Dates: start: 20120419
  2. SALOFALK [Concomitant]
     Route: 065

REACTIONS (3)
  - Inguinal hernia [Not Recovered/Not Resolved]
  - Prostatectomy [Unknown]
  - Eye infection [Recovering/Resolving]
